FAERS Safety Report 23497840 (Version 1)
Quarter: 2024Q1

REPORT INFORMATION
  Report Type: Spontaneous
  Country: US (occurrence: None)
  Receive Date: 20240207
  Receipt Date: 20240207
  Transmission Date: 20240410
  Serious: No
  Sender: FDA-Public Use
  Company Number: US-ROCHE-3466839

PATIENT
  Age: 32 Year
  Sex: Female

DRUGS (10)
  1. XOLAIR [Suspect]
     Active Substance: OMALIZUMAB
     Indication: Mast cell activation syndrome
     Dosage: SUBSEQUENT DOSE ADMINISTERED ON 12/OCT/2023
     Route: 042
     Dates: start: 20231012
  2. ALPRAZOLAM [Concomitant]
     Active Substance: ALPRAZOLAM
  3. BOTOX [Concomitant]
     Active Substance: ONABOTULINUMTOXINA
  4. CROMOLYN [Concomitant]
     Active Substance: CROMOLYN
  5. DOCUSATE [Concomitant]
     Active Substance: DOCUSATE
  6. FEXOFENADINE [Concomitant]
     Active Substance: FEXOFENADINE HYDROCHLORIDE
  7. FAMOTIDINE [Concomitant]
     Active Substance: FAMOTIDINE
  8. HYDROMORPHONE [Concomitant]
     Active Substance: HYDROMORPHONE
  9. MOVANTIK [Concomitant]
     Active Substance: NALOXEGOL OXALATE
  10. ZOFRAN [Concomitant]
     Active Substance: ONDANSETRON HYDROCHLORIDE

REACTIONS (10)
  - Off label use [Unknown]
  - Arthralgia [Not Recovered/Not Resolved]
  - Bone pain [Not Recovered/Not Resolved]
  - Arthropathy [Not Recovered/Not Resolved]
  - Abdominal pain upper [Not Recovered/Not Resolved]
  - Gastrointestinal disorder [Not Recovered/Not Resolved]
  - Hyperhidrosis [Not Recovered/Not Resolved]
  - Tremor [Not Recovered/Not Resolved]
  - Heart rate increased [Not Recovered/Not Resolved]
  - Chills [Not Recovered/Not Resolved]
